FAERS Safety Report 9587772 (Version 1)
Quarter: 2013Q4

REPORT INFORMATION
  Report Type: Spontaneous
  Country: US (occurrence: US)
  Receive Date: 20131003
  Receipt Date: 20131003
  Transmission Date: 20140711
  Serious: Yes (Death, Hospitalization)
  Sender: FDA-Public Use
  Company Number: US-FRI-1000049344

PATIENT
  Age: 50 Year
  Sex: Male

DRUGS (4)
  1. CEFTAROLINE FOSAMIL [Suspect]
     Indication: STAPHYLOCOCCAL BACTERAEMIA
     Dosage: 600 UNK, EVERY 12H
     Route: 042
  2. CUBICIN [Suspect]
     Indication: STAPHYLOCOCCAL BACTERAEMIA
     Route: 042
  3. CUBICIN [Suspect]
     Route: 042
  4. AMPICILLIN SULBACTUM [Suspect]
     Indication: STAPHYLOCOCCAL BACTERAEMIA

REACTIONS (4)
  - Death [Fatal]
  - Escherichia bacteraemia [Unknown]
  - Device related infection [Unknown]
  - Treatment failure [Unknown]
